FAERS Safety Report 19142388 (Version 10)
Quarter: 2021Q3

REPORT INFORMATION
  Report Type: Spontaneous
  Country: DE (occurrence: DE)
  Receive Date: 20210416
  Receipt Date: 20210805
  Transmission Date: 20211014
  Serious: Yes (Hospitalization, Other)
  Sender: FDA-Public Use
  Company Number: DE-AUROBINDO-AUR-APL-2021-015323

PATIENT
  Age: 62 Year
  Sex: Female
  Weight: 65 kg

DRUGS (20)
  1. AGOMELATIN [Suspect]
     Active Substance: AGOMELATINE
     Indication: DEPRESSIVE SYMPTOM
  2. PRAMIPEXOLE. [Suspect]
     Active Substance: PRAMIPEXOLE
     Indication: PARKINSON^S DISEASE
     Dosage: UNK (DOSE REDUCED)
     Route: 065
  3. RANOLAZINE. [Suspect]
     Active Substance: RANOLAZINE
     Indication: HYPERTENSION
     Dosage: 375 MILLIGRAM, ONCE A DAY
     Route: 065
  4. PRAMIPEXOLE. [Suspect]
     Active Substance: PRAMIPEXOLE
     Indication: DEPRESSIVE SYMPTOM
     Dosage: 0.52 MILLIGRAM, ONCE A DAY
     Route: 065
  5. PRAMIPEXOLE. [Suspect]
     Active Substance: PRAMIPEXOLE
     Dosage: 1 MILLIGRAM
     Route: 065
  6. LEVODOPA [Concomitant]
     Active Substance: LEVODOPA
     Indication: PRODUCT USED FOR UNKNOWN INDICATION
     Dosage: 200 MILLIGRAM, ONCE A DAY
     Route: 065
  7. MIRTAZAPINE. [Concomitant]
     Active Substance: MIRTAZAPINE
     Indication: INSOMNIA
     Dosage: UNK,TREATMENT TRIAL
     Route: 065
  8. AGOMELATIN [Suspect]
     Active Substance: AGOMELATINE
     Indication: INSOMNIA
     Dosage: 50 MILLIGRAM, ONCE A DAY
     Route: 065
  9. TRAZODONE HYDROCHLORIDE. [Suspect]
     Active Substance: TRAZODONE HYDROCHLORIDE
     Indication: INSOMNIA
     Dosage: UNK
     Route: 065
  10. BENSERAZIDE [Concomitant]
     Active Substance: BENSERAZIDE
     Indication: PRODUCT USED FOR UNKNOWN INDICATION
     Dosage: 50 MILLIGRAM, ONCE A DAY
     Route: 065
  11. MOCLOBEMIDE [Interacting]
     Active Substance: MOCLOBEMIDE
     Indication: PARKINSON^S DISEASE
     Dosage: 150 MILLIGRAM, ONCE A DAY (ABOUT 1 YEAR)
     Route: 065
  12. RASAGILINE. [Interacting]
     Active Substance: RASAGILINE
     Indication: DEPRESSIVE SYMPTOM
  13. RASAGILINE. [Interacting]
     Active Substance: RASAGILINE
     Indication: PARKINSON^S DISEASE
     Dosage: 1 MILLIGRAM, ONCE A DAY
     Route: 065
  14. L?DOPA+BENSERAZIDE [Suspect]
     Active Substance: BENSERAZIDE\LEVODOPA
     Indication: PARKINSON^S DISEASE
     Dosage: ONCE A DAY, 200+50MG, QD
     Route: 065
  15. L?DOPA+BENSERAZIDE [Suspect]
     Active Substance: BENSERAZIDE\LEVODOPA
     Dosage: 375 MILLIGRAM, ONCE A DAY (125 MG, 3X PER DAY)
     Route: 065
  16. PRAMIPEXOLE. [Suspect]
     Active Substance: PRAMIPEXOLE
     Dosage: 0.53 MILLIGRAM, ONCE A DAY
     Route: 065
  17. MOCLOBEMIDE [Interacting]
     Active Substance: MOCLOBEMIDE
     Indication: DEPRESSIVE SYMPTOM
     Dosage: 450 MILLIGRAM, ONCE A DAY
     Route: 065
  18. MOCLOBEMIDE [Interacting]
     Active Substance: MOCLOBEMIDE
     Indication: DEPRESSION
  19. RANOLAZINE. [Suspect]
     Active Substance: RANOLAZINE
     Indication: ANGINA PECTORIS
     Dosage: UNK
     Route: 065
  20. LEVOTHYROXINE. [Concomitant]
     Active Substance: LEVOTHYROXINE
     Indication: HYPOTHYROIDISM
     Dosage: 100 MICROGRAM, ONCE A DAY
     Route: 065

REACTIONS (13)
  - Drug interaction [Recovered/Resolved]
  - Drug ineffective [Unknown]
  - Drug intolerance [Unknown]
  - Potentiating drug interaction [Unknown]
  - Drug level increased [Recovered/Resolved]
  - Toxicity to various agents [Recovering/Resolving]
  - Serotonin syndrome [Recovered/Resolved]
  - Serum serotonin increased [Recovered/Resolved]
  - Contraindicated product administered [Unknown]
  - Drug ineffective for unapproved indication [Unknown]
  - Labelled drug-drug interaction issue [Recovered/Resolved]
  - Condition aggravated [Recovered/Resolved]
  - Autonomic nervous system imbalance [Recovered/Resolved]
